FAERS Safety Report 17481921 (Version 1)
Quarter: 2020Q1

REPORT INFORMATION
  Report Type: Spontaneous
  Country: CN (occurrence: CN)
  Receive Date: 20200302
  Receipt Date: 20200302
  Transmission Date: 20200409
  Serious: Yes (Hospitalization, Other)
  Sender: FDA-Public Use
  Company Number: CN-BAXTER-2020BAX004350

PATIENT
  Age: 12 Year
  Sex: Female
  Weight: 30 kg

DRUGS (8)
  1. 0.9% SODIUM CHLORIDE INJECTION [Suspect]
     Active Substance: SODIUM CHLORIDE
     Indication: MEDICATION DILUTION
     Dosage: PRIOR CHEMOTHERAPY, IFOSFAMIDE + SODIUM CHLORIDE (NS)
     Route: 041
  2. HOLOXAN [Suspect]
     Active Substance: IFOSFAMIDE
     Dosage: IFOSFAMIDE + SODIUM CHLORIDE (NS) 500 ML
     Route: 041
     Dates: start: 20200126, end: 20200128
  3. HOLOXAN [Suspect]
     Active Substance: IFOSFAMIDE
     Dosage: DOSE RE-INTRODUCED, IFOSFAMIDE + SODIUM CHLORIDE (NS)
     Route: 041
     Dates: start: 202002
  4. 0.9% SODIUM CHLORIDE INJECTION [Suspect]
     Active Substance: SODIUM CHLORIDE
     Dosage: IFOSFAMIDE (3.4 G) + SODIUM CHLORIDE (NS)
     Route: 041
     Dates: start: 20200131, end: 20200201
  5. HOLOXAN [Suspect]
     Active Substance: IFOSFAMIDE
     Indication: OSTEOSARCOMA
     Dosage: PRIOR CHEMOTHERAPY, IFOSFAMIDE + SODIUM CHLORIDE (NS)
     Route: 041
  6. 0.9% SODIUM CHLORIDE INJECTION [Suspect]
     Active Substance: SODIUM CHLORIDE
     Dosage: DOSE RE-INTRODUCED, IFOSFAMIDE + SODIUM CHLORIDE (NS)
     Route: 041
     Dates: start: 202002
  7. HOLOXAN [Suspect]
     Active Substance: IFOSFAMIDE
     Dosage: IFOSFAMIDE + SODIUM CHLORIDE (NS) 500 ML
     Route: 041
     Dates: start: 20200131, end: 20200201
  8. 0.9% SODIUM CHLORIDE INJECTION [Suspect]
     Active Substance: SODIUM CHLORIDE
     Dosage: IFOSFAMIDE (3.4 G) + SODIUM CHLORIDE (NS)
     Route: 041
     Dates: start: 20200126, end: 20200128

REACTIONS (2)
  - Bone marrow failure [Recovering/Resolving]
  - Bone marrow failure [Recovered/Resolved]

NARRATIVE: CASE EVENT DATE: 20200202
